FAERS Safety Report 24633828 (Version 2)
Quarter: 2024Q4

REPORT INFORMATION
  Report Type: Report from Study
  Country: GB (occurrence: GB)
  Receive Date: 20241118
  Receipt Date: 20241121
  Transmission Date: 20250115
  Serious: No
  Sender: ABBVIE
  Company Number: GB-ABBVIE-6006664

PATIENT
  Sex: Male

DRUGS (1)
  1. SKYRIZI [Suspect]
     Active Substance: RISANKIZUMAB-RZAA
     Indication: Crohn^s disease
     Dosage: DOSE: 1.00 EA?360MG/2.4ML ?FREQUENCY:E56D
     Route: 058

REACTIONS (2)
  - Cataract [Not Recovered/Not Resolved]
  - Pneumonia [Not Recovered/Not Resolved]
